FAERS Safety Report 22176502 (Version 3)
Quarter: 2023Q2

REPORT INFORMATION
  Report Type: Spontaneous
  Country: US (occurrence: US)
  Receive Date: 20230405
  Receipt Date: 20230518
  Transmission Date: 20230722
  Serious: No
  Sender: FDA-Public Use
  Company Number: US-Ipsen Biopharmaceuticals, Inc.-2023-04864

PATIENT
  Age: 59 Year
  Sex: Female

DRUGS (4)
  1. DYSPORT [Suspect]
     Active Substance: ABOBOTULINUMTOXINA
     Indication: Skin cosmetic procedure
     Route: 065
     Dates: start: 20221209, end: 20221209
  2. HYALURONIC ACID [Suspect]
     Active Substance: HYALURONIC ACID
     Indication: Skin cosmetic procedure
     Route: 065
     Dates: start: 20221209
  3. ESTROGENS [Concomitant]
     Active Substance: ESTROGENS
     Indication: Hormone replacement therapy
  4. MODERNA COVID-19 VACCINE [Concomitant]
     Active Substance: ELASOMERAN
     Indication: COVID-19

REACTIONS (9)
  - Skin warm [Recovering/Resolving]
  - Infection [Recovering/Resolving]
  - Erythema [Recovering/Resolving]
  - Pain [Recovered/Resolved]
  - Contusion [Recovered/Resolved]
  - Facial pain [Recovering/Resolving]
  - Influenza like illness [Unknown]
  - Swelling face [Not Recovered/Not Resolved]
  - Swelling [Recovering/Resolving]

NARRATIVE: CASE EVENT DATE: 20221209
